FAERS Safety Report 4286585-7 (Version None)
Quarter: 2004Q1

REPORT INFORMATION
  Report Type: 
  Country: None (occurrence: None)
  Receive Date: 20040202
  Receipt Date: 20040113
  Transmission Date: 20041129
  Serious: Yes (Hospitalization)
  Sender: FDA-Public Use
  Company Number: 2004-111904-NL

PATIENT
  Age: 45 Year
  Sex: Male

DRUGS (1)
  1. TICE BCG [Suspect]
     Indication: BLADDER CANCER RECURRENT
     Dosage: INTRAVESICAL
     Route: 043

REACTIONS (11)
  - ARTHRITIS [None]
  - BALANITIS [None]
  - C-REACTIVE PROTEIN INCREASED [None]
  - CONJUNCTIVITIS [None]
  - JOINT SWELLING [None]
  - NECK PAIN [None]
  - RED BLOOD CELL SEDIMENTATION RATE INCREASED [None]
  - REITER'S SYNDROME [None]
  - SYNOVIAL FLUID WHITE BLOOD CELLS POSITIVE [None]
  - TENDONITIS [None]
  - WHITE BLOOD CELLS URINE POSITIVE [None]
